FAERS Safety Report 8601106 (Version 2)
Quarter: 2012Q4

REPORT INFORMATION
  Report Type: Report from Study
  Country: JP (occurrence: JP)
  Receive Date: 20120606
  Receipt Date: 20120920
  Transmission Date: 20130627
  Serious: Yes (Hospitalization, Disabling)
  Sender: FDA-Public Use
  Company Number: JP-ROCHE-1075494

PATIENT
  Age: 75 Year
  Sex: Male

DRUGS (10)
  1. RANIBIZUMAB [Suspect]
     Indication: AGE-RELATED MACULAR DEGENERATION
     Route: 050
     Dates: start: 20120402
  2. FLOMOX [Concomitant]
  3. IRBESARTAN [Concomitant]
  4. METHYCOBAL [Concomitant]
  5. LIPIDIL [Concomitant]
  6. LANSOPRAZOLE [Concomitant]
  7. AMLODIPINE [Concomitant]
  8. MINIPRESS [Concomitant]
  9. MIKELAN [Concomitant]
  10. LUMIGAN [Concomitant]

REACTIONS (1)
  - Cerebral infarction [Recovering/Resolving]
